FAERS Safety Report 25833320 (Version 2)
Quarter: 2025Q4

REPORT INFORMATION
  Report Type: Spontaneous
  Country: EU (occurrence: EU)
  Receive Date: 20250922
  Receipt Date: 20251027
  Transmission Date: 20260117
  Serious: Yes (Hospitalization, Other)
  Sender: ELI LILLY AND COMPANY
  Company Number: EU-ELI_LILLY_AND_COMPANY-IT202508027937

PATIENT
  Age: 61 Year
  Sex: Female
  Weight: 55 kg

DRUGS (14)
  1. DONANEMAB [Suspect]
     Active Substance: DONANEMAB
     Indication: Dementia Alzheimer^s type
     Dosage: 350 MG, MONTHLY (1/M)
     Route: 065
     Dates: start: 20250513
  2. DONANEMAB [Suspect]
     Active Substance: DONANEMAB
     Dosage: 700 MG, MONTHLY (1/M)
     Route: 065
     Dates: start: 20250617
  3. DONANEMAB [Suspect]
     Active Substance: DONANEMAB
     Dosage: 1050 MG, MONTHLY (1/M)
     Route: 065
     Dates: start: 20250708
  4. DONANEMAB [Suspect]
     Active Substance: DONANEMAB
     Dosage: UNK UNK, MONTHLY (1/M) RESUMED DOSE
     Route: 065
  5. VENLAFAXINE HYDROCHLORIDE [Concomitant]
     Active Substance: VENLAFAXINE HYDROCHLORIDE
     Indication: Product used for unknown indication
     Dosage: 75 MG, DAILY
     Route: 065
  6. ESOMEPRAZOLE [Concomitant]
     Active Substance: ESOMEPRAZOLE
     Indication: Product used for unknown indication
     Dosage: 20 MG, DAILY
     Route: 065
  7. DONEPEZIL [Concomitant]
     Active Substance: DONEPEZIL
     Indication: Product used for unknown indication
     Dosage: 5 MG, DAILY
     Route: 065
  8. MONURELLE [Concomitant]
     Indication: Supplementation therapy
     Dosage: 1 TAB, BID
     Route: 065
  9. PILOREX [ASCORBIC ACID;FOLIC ACID;LACTOBACILL [Concomitant]
     Indication: Supplementation therapy
     Dosage: 1 TAB, DAILY
     Route: 065
  10. ACETAMINOPHEN [Concomitant]
     Active Substance: ACETAMINOPHEN
     Indication: Premedication
     Dosage: 1 G, UNKNOWN
     Route: 065
     Dates: start: 20250513
  11. CETIRIZINE [Concomitant]
     Active Substance: CETIRIZINE HYDROCHLORIDE
     Indication: Premedication
     Dosage: 10 MG, UNKNOWN
     Route: 065
     Dates: start: 20250513
  12. FAMOTIDINE [Concomitant]
     Active Substance: FAMOTIDINE
     Indication: Premedication
     Dosage: 40 MG, UNKNOWN
     Route: 065
     Dates: start: 20250513
  13. METHYLPREDNISOLONE [Concomitant]
     Active Substance: METHYLPREDNISOLONE
     Indication: Premedication
     Dosage: 125 MG, UNKNOWN
     Route: 042
     Dates: start: 20250617
  14. METHYLPREDNISOLONE [Concomitant]
     Active Substance: METHYLPREDNISOLONE
     Dosage: 125 MG, UNKNOWN
     Route: 042
     Dates: start: 20250708

REACTIONS (4)
  - Amyloid related imaging abnormality-oedema/effusion [Not Recovered/Not Resolved]
  - Fall [Recovered/Resolved]
  - Injury [Unknown]
  - Rib fracture [Unknown]

NARRATIVE: CASE EVENT DATE: 20250726
